FAERS Safety Report 6198107-4 (Version None)
Quarter: 2009Q2

REPORT INFORMATION
  Report Type: 
  Country: None (occurrence: None)
  Receive Date: 20090514
  Receipt Date: 20081211
  Transmission Date: 20091009
  Serious: Yes (Hospitalization, Other)
  Sender: FDA-Public Use
  Company Number: 55289

PATIENT
  Age: 50 Year
  Sex: Male

DRUGS (1)
  1. MITOMYCIN [Suspect]
     Indication: ANAL CANCER

REACTIONS (2)
  - PULMONARY OEDEMA [None]
  - RESPIRATORY DISTRESS [None]
